FAERS Safety Report 25283254 (Version 1)
Quarter: 2025Q2

REPORT INFORMATION
  Report Type: Spontaneous
  Country: US (occurrence: US)
  Receive Date: 20250508
  Receipt Date: 20250508
  Transmission Date: 20250716
  Serious: Yes (Other)
  Sender: NORDIC PHARMA
  Company Number: US-NORDIC PHARMA, INC-2025US002248

PATIENT

DRUGS (1)
  1. MESALAMINE RECTAL [Suspect]
     Active Substance: MESALAMINE
     Indication: Crohn^s disease

REACTIONS (1)
  - Mycetoma mycotic [Unknown]
